FAERS Safety Report 9959745 (Version 1)
Quarter: 2014Q1

REPORT INFORMATION
  Report Type: Report from Study
  Country: US (occurrence: US)
  Receive Date: 20140305
  Receipt Date: 20140305
  Transmission Date: 20141002
  Serious: No
  Sender: FDA-Public Use
  Company Number: US-ABBVIE-13P-163-1105120-00

PATIENT
  Age: 6 Year
  Sex: Male

DRUGS (4)
  1. HUMIRA [Suspect]
     Indication: IRIDOCYCLITIS
     Dates: start: 201305
  2. FLOVENT [Concomitant]
     Indication: PRODUCT USED FOR UNKNOWN INDICATION
  3. FOLIC ACID [Concomitant]
     Indication: PRODUCT USED FOR UNKNOWN INDICATION
  4. PREDNISOLONE [Concomitant]
     Indication: PRODUCT USED FOR UNKNOWN INDICATION

REACTIONS (2)
  - Off label use [Not Recovered/Not Resolved]
  - Injection site pain [Not Recovered/Not Resolved]
